FAERS Safety Report 5553559-5 (Version None)
Quarter: 2007Q4

REPORT INFORMATION
  Report Type: 
  Country: None (occurrence: None)
  Receive Date: 20071213
  Receipt Date: 20071211
  Transmission Date: 20080405
  Serious: Yes (Death)
  Sender: FDA-Public Use
  Company Number: RU-JNJFOC-20071203022

PATIENT
  Sex: Male

DRUGS (4)
  1. HALOPERIDOL DECANOATE [Suspect]
     Indication: DRUG USE FOR UNKNOWN INDICATION
  2. HALOPERIDOL DECANOATE [Suspect]
  3. CLOZAPINE [Suspect]
     Indication: DRUG USE FOR UNKNOWN INDICATION
  4. AMITRIPTLINE HCL [Concomitant]

REACTIONS (1)
  - COMPLETED SUICIDE [None]
